FAERS Safety Report 7349092-0 (Version None)
Quarter: 2011Q1

REPORT INFORMATION
  Report Type: 
  Country: None (occurrence: None)
  Receive Date: 20110303
  Receipt Date: 20110222
  Transmission Date: 20110831
  Serious: Yes (Hospitalization)
  Sender: FDA-Public Use
  Company Number: 023696

PATIENT
  Sex: Male
  Weight: 105 kg

DRUGS (17)
  1. LEVOCARB [Concomitant]
  2. MAGNESIOCARD /00669702/ [Concomitant]
  3. ASPIRIN [Concomitant]
  4. NITRENDIPIN [Concomitant]
  5. XIPAMID [Concomitant]
  6. NEUPRO [Suspect]
     Indication: PARKINSON'S DISEASE
     Dosage: (2 MG QD TRANSDERMAL), (4 MG QD TRANSDERMAL), (6 MG QD TRANSDERMAL), (8 MG QD TRANSDERMAL)
     Route: 062
     Dates: start: 20090725, end: 20090827
  7. NEUPRO [Suspect]
     Indication: PARKINSON'S DISEASE
     Dosage: (2 MG QD TRANSDERMAL), (4 MG QD TRANSDERMAL), (6 MG QD TRANSDERMAL), (8 MG QD TRANSDERMAL)
     Route: 062
     Dates: start: 20090828, end: 20091027
  8. NEUPRO [Suspect]
     Indication: PARKINSON'S DISEASE
     Dosage: (2 MG QD TRANSDERMAL), (4 MG QD TRANSDERMAL), (6 MG QD TRANSDERMAL), (8 MG QD TRANSDERMAL)
     Route: 062
     Dates: start: 20090711, end: 20090717
  9. NEUPRO [Suspect]
     Indication: PARKINSON'S DISEASE
     Dosage: (2 MG QD TRANSDERMAL), (4 MG QD TRANSDERMAL), (6 MG QD TRANSDERMAL), (8 MG QD TRANSDERMAL)
     Route: 062
     Dates: start: 20090718, end: 20090724
  10. NEUPRO [Suspect]
     Indication: PARKINSON'S DISEASE
     Dosage: (2 MG QD TRANSDERMAL), (4 MG QD TRANSDERMAL), (6 MG QD TRANSDERMAL), (8 MG QD TRANSDERMAL)
     Route: 062
     Dates: start: 20091028, end: 20100223
  11. IBUPROFEN [Concomitant]
  12. LORATADINE [Concomitant]
  13. MADOPAR LT [Concomitant]
  14. AZILECT [Concomitant]
  15. PANTOZOL /01263202/ [Concomitant]
  16. MOVICOL /01749801/ [Concomitant]
  17. BLOPRESS [Concomitant]

REACTIONS (2)
  - OEDEMA PERIPHERAL [None]
  - INTERVERTEBRAL DISC PROTRUSION [None]
